FAERS Safety Report 5793444-7 (Version None)
Quarter: 2008Q2

REPORT INFORMATION
  Report Type: 
  Country: None (occurrence: None)
  Receive Date: 20080627
  Receipt Date: 20080613
  Transmission Date: 20081010
  Serious: Yes (Other)
  Sender: FDA-Public Use
  Company Number: ES-MERCK-0806ESP00026

PATIENT

DRUGS (2)
  1. INVANZ [Suspect]
     Indication: SEPTIC SHOCK
     Route: 042
  2. INVANZ [Suspect]
     Indication: ABDOMINAL INFECTION
     Route: 042

REACTIONS (1)
  - NO THERAPEUTIC RESPONSE [None]
